FAERS Safety Report 25277235 (Version 2)
Quarter: 2025Q2

REPORT INFORMATION
  Report Type: Spontaneous
  Country: DE (occurrence: DE)
  Receive Date: 20250507
  Receipt Date: 20250513
  Transmission Date: 20250716
  Serious: Yes (Other)
  Sender: SANDOZ
  Company Number: DE-SANDOZ-SDZ2025DE028029

PATIENT
  Age: 28 Year
  Sex: Male

DRUGS (1)
  1. ALBUTEROL SULFATE [Suspect]
     Active Substance: ALBUTEROL SULFATE
     Indication: Asthma
     Dosage: UNK, QID (ALBUTEROL SULFATE INH. AEROSOL HIKMA 200 PUFF USA) THE SPRAY IS USED MAX. 4 TIMES A DAY; 1
     Route: 065
     Dates: start: 20241223

REACTIONS (3)
  - Drug delivery system issue [Unknown]
  - Dyspnoea [Unknown]
  - Drug effect less than expected [Unknown]

NARRATIVE: CASE EVENT DATE: 20250116
